FAERS Safety Report 20175684 (Version 1)
Quarter: 2021Q4

REPORT INFORMATION
  Report Type: Spontaneous
  Country: CN (occurrence: CN)
  Receive Date: 20211213
  Receipt Date: 20211213
  Transmission Date: 20220304
  Serious: Yes (Other)
  Sender: FDA-Public Use
  Company Number: CN-Merck Healthcare KGaA-9284447

PATIENT
  Age: 54 Year
  Sex: Female
  Weight: 50 kg

DRUGS (5)
  1. ERBITUX [Suspect]
     Active Substance: CETUXIMAB
     Indication: Colon cancer
     Dosage: 800 MG, UNKNOWN
     Route: 041
     Dates: start: 20211029, end: 20211029
  2. FLUOROURACIL [Suspect]
     Active Substance: FLUOROURACIL
     Indication: Colon cancer
     Dosage: 1.5 G, UNKNOWN
     Route: 041
     Dates: start: 20211030, end: 20211031
  3. LEVOLEUCOVORIN CALCIUM [Suspect]
     Active Substance: LEVOLEUCOVORIN CALCIUM
     Indication: Colon cancer
     Dosage: 150 MG, UNKNOWN
     Route: 041
     Dates: start: 20211030, end: 20211030
  4. OXALIPLATIN [Suspect]
     Active Substance: OXALIPLATIN
     Indication: Colon cancer
     Dosage: 120 MG, UNKNOWN
     Route: 041
     Dates: start: 20211030, end: 20211031
  5. MANNITOL [Suspect]
     Active Substance: MANNITOL
     Indication: Colon cancer
     Dosage: 120 MG, UNKNOWN
     Route: 041
     Dates: start: 20211030, end: 20211031

REACTIONS (2)
  - Haemoglobin decreased [Recovering/Resolving]
  - Platelet count decreased [Recovering/Resolving]

NARRATIVE: CASE EVENT DATE: 20211116
